FAERS Safety Report 8247538-7 (Version None)
Quarter: 2012Q1

REPORT INFORMATION
  Report Type: 
  Country: None (occurrence: None)
  Receive Date: 20120330
  Receipt Date: 20120308
  Transmission Date: 20120608
  Serious: Yes (Other)
  Sender: FDA-Public Use
  Company Number: US-BAYER-2012-024041

PATIENT
  Sex: Female

DRUGS (1)
  1. NEXAVAR [Suspect]
     Indication: HEPATIC NEOPLASM MALIGNANT
     Dosage: 400 MG, BID
     Dates: start: 20120221, end: 20120307

REACTIONS (6)
  - MALAISE [None]
  - DIARRHOEA [None]
  - ASTHENIA [None]
  - FALL [None]
  - VOMITING [None]
  - CONTUSION [None]
